FAERS Safety Report 19184506 (Version 1)
Quarter: 2021Q2

REPORT INFORMATION
  Report Type: Spontaneous
  Country: US (occurrence: US)
  Receive Date: 20210426
  Receipt Date: 20210426
  Transmission Date: 20210717
  Serious: Yes (Hospitalization)
  Sender: FDA-Public Use
  Company Number: None

PATIENT
  Age: 72 Year
  Sex: Male
  Weight: 115.67 kg

DRUGS (1)
  1. DAPTOMYCIN (DAPTOMYCIN 250MG/VIL INJ) [Suspect]
     Active Substance: DAPTOMYCIN
     Dosage: ?          OTHER ROUTE:IV?
     Route: 042
     Dates: start: 20210115, end: 20210125

REACTIONS (4)
  - Toxicity to various agents [None]
  - Acute kidney injury [None]
  - Condition aggravated [None]
  - Hepatic enzyme increased [None]

NARRATIVE: CASE EVENT DATE: 20210122
